FAERS Safety Report 20046046 (Version 1)
Quarter: 2021Q4

REPORT INFORMATION
  Report Type: Spontaneous
  Country: US (occurrence: None)
  Receive Date: 20211108
  Receipt Date: 20211108
  Transmission Date: 20220303
  Serious: No
  Sender: FDA-Public Use
  Company Number: None

PATIENT
  Age: 56 Year
  Sex: Female

DRUGS (1)
  1. DEFERASIROX [Suspect]
     Active Substance: DEFERASIROX
     Indication: Haemochromatosis
     Dosage: OTHER QUANTITY : 1080;?FREQUENCY : DAILY;?
     Route: 048
     Dates: start: 202110, end: 202111

REACTIONS (4)
  - Kidney infection [None]
  - Headache [None]
  - Rash [None]
  - Hepatitis [None]

NARRATIVE: CASE EVENT DATE: 20211108
